FAERS Safety Report 9716500 (Version 1)
Quarter: 2013Q4

REPORT INFORMATION
  Report Type: Spontaneous
  Country: TW (occurrence: TW)
  Receive Date: 20131127
  Receipt Date: 20131127
  Transmission Date: 20140711
  Serious: Yes (Other)
  Sender: FDA-Public Use
  Company Number: TW-ABBVIE-13P-153-1170862-00

PATIENT
  Age: 56 Year
  Sex: Female

DRUGS (3)
  1. CYCLOSPORINE [Suspect]
     Indication: IMMUNOSUPPRESSION
  2. AZATHIOPRINE [Suspect]
     Indication: IMMUNOSUPPRESSION
  3. PREDNISOLONE [Suspect]
     Indication: IMMUNOSUPPRESSION

REACTIONS (2)
  - Brucellosis [Recovered/Resolved]
  - Brucellosis [Recovered/Resolved]
